FAERS Safety Report 9679551 (Version 1)
Quarter: 2013Q4

REPORT INFORMATION
  Report Type: Spontaneous
  Country: US (occurrence: US)
  Receive Date: 20131109
  Receipt Date: 20131109
  Transmission Date: 20140711
  Serious: No
  Sender: FDA-Public Use
  Company Number: US-SANOFI-AVENTIS-2013SA092129

PATIENT
  Age: 50 Year
  Sex: Female

DRUGS (3)
  1. ALLEGRA-D [Suspect]
     Indication: SINUS DISORDER
     Dosage: THERAPY STARTED SINCE ABOUT A YEAR AGO
     Route: 048
  2. ALLEGRA-D [Suspect]
     Indication: SINUS DISORDER
     Route: 048
  3. Z-PAK [Concomitant]

REACTIONS (2)
  - Hypothyroidism [Recovered/Resolved]
  - Extra dose administered [Unknown]
